FAERS Safety Report 19133916 (Version 1)
Quarter: 2021Q2

REPORT INFORMATION
  Report Type: Spontaneous
  Country: US (occurrence: US)
  Receive Date: 20210414
  Receipt Date: 20210414
  Transmission Date: 20210717
  Serious: No
  Sender: FDA-Public Use
  Company Number: US-ACCORD-207655

PATIENT
  Sex: Male
  Weight: 90.91 kg

DRUGS (1)
  1. FINASTERIDE. [Suspect]
     Active Substance: FINASTERIDE
     Indication: BENIGN PROSTATIC HYPERPLASIA
     Dosage: ONCE A DAY
     Route: 048
     Dates: start: 20201102

REACTIONS (2)
  - Dizziness [Unknown]
  - Heart rate irregular [Unknown]
